FAERS Safety Report 7451118-0 (Version None)
Quarter: 2011Q2

REPORT INFORMATION
  Report Type: 
  Country: None (occurrence: None)
  Receive Date: 20110422
  Receipt Date: 20110408
  Transmission Date: 20111010
  Serious: Yes (Other)
  Sender: FDA-Public Use
  Company Number: 20110292

PATIENT
  Sex: Male

DRUGS (1)
  1. DEXAMETHASONE SODIUM PHOSPHATE [Suspect]
     Indication: CARPAL TUNNEL SYNDROME
     Dosage: INTRA-ARTICULAR
     Route: 014

REACTIONS (5)
  - DISCOMFORT [None]
  - TENDERNESS [None]
  - PRODUCT QUALITY ISSUE [None]
  - GRIP STRENGTH DECREASED [None]
  - IMPAIRED WORK ABILITY [None]
